FAERS Safety Report 10314192 (Version 2)
Quarter: 2014Q3

REPORT INFORMATION
  Report Type: Spontaneous
  Country: IT (occurrence: IT)
  Receive Date: 20140718
  Receipt Date: 20140914
  Transmission Date: 20150326
  Serious: Yes (Hospitalization)
  Sender: FDA-Public Use
  Company Number: IT-BRISTOL-MYERS SQUIBB COMPANY-21198437

PATIENT
  Age: 93 Year
  Sex: Female

DRUGS (8)
  1. DILATREND [Concomitant]
     Active Substance: CARVEDILOL
  2. LANOXIN [Concomitant]
     Active Substance: DIGOXIN
  3. TAPAZOLE [Concomitant]
     Active Substance: METHIMAZOLE
  4. DEPONIT [Concomitant]
     Active Substance: NITROGLYCERIN
  5. ALDACTONE [Concomitant]
     Active Substance: SPIRONOLACTONE
  6. ZESTRIL [Concomitant]
     Active Substance: LISINOPRIL
  7. LANSOX [Concomitant]
     Active Substance: LANSOPRAZOLE
  8. COUMADIN [Suspect]
     Active Substance: WARFARIN SODIUM
     Indication: ATRIAL FIBRILLATION
     Route: 048
     Dates: start: 20121018, end: 20131018

REACTIONS (3)
  - Activated partial thromboplastin time prolonged [Unknown]
  - Overdose [Unknown]
  - Dyspnoea [Unknown]

NARRATIVE: CASE EVENT DATE: 20131018
